FAERS Safety Report 5826813-7 (Version None)
Quarter: 2008Q3

REPORT INFORMATION
  Report Type: 
  Country: None (occurrence: None)
  Receive Date: 20080728
  Receipt Date: 20080728
  Transmission Date: 20090109
  Serious: No
  Sender: FDA-Public Use
  Company Number: None

PATIENT
  Age: 59 Year
  Sex: Male
  Weight: 117.9352 kg

DRUGS (1)
  1. CEFAZOLIN [Suspect]
     Indication: OSTEOMYELITIS
     Dosage: 2GM EVERY 8 HOURS IV
     Route: 042
     Dates: start: 20080606, end: 20080714

REACTIONS (2)
  - DYSPHAGIA [None]
  - RASH [None]
